FAERS Safety Report 17932911 (Version 1)
Quarter: 2020Q2

REPORT INFORMATION
  Report Type: Spontaneous
  Country: DK (occurrence: DK)
  Receive Date: 20200624
  Receipt Date: 20200624
  Transmission Date: 20200714
  Serious: Yes (Hospitalization)
  Sender: FDA-Public Use
  Company Number: DK-TEVA-2020-DK-1790623

PATIENT
  Age: 26 Year
  Sex: Female

DRUGS (2)
  1. AJOVY [Suspect]
     Active Substance: FREMANEZUMAB-VFRM
     Dosage: 3X 225MG IN THE UPPER EXTREMITY BY A NURSE (2 IN LEFT OVERARM AND 1 IN RIGHT OVERARM)
     Route: 065
     Dates: start: 20200603
  2. CANDESARTAN. [Concomitant]
     Active Substance: CANDESARTAN
     Route: 065

REACTIONS (7)
  - Decreased appetite [Unknown]
  - Tremor [Unknown]
  - Migraine [Unknown]
  - Vomiting [Unknown]
  - C-reactive protein increased [Unknown]
  - Abdominal pain upper [Unknown]
  - Pyrexia [Unknown]

NARRATIVE: CASE EVENT DATE: 20200610
